FAERS Safety Report 23587150 (Version 1)
Quarter: 2024Q1

REPORT INFORMATION
  Report Type: Spontaneous
  Country: US (occurrence: None)
  Receive Date: 20240301
  Receipt Date: 20240301
  Transmission Date: 20240410
  Serious: No
  Sender: FDA-Public Use
  Company Number: None

PATIENT
  Age: 58 Year
  Sex: Female

DRUGS (3)
  1. LASIX [Suspect]
     Active Substance: FUROSEMIDE
  2. BACTRIM [Suspect]
     Active Substance: SULFAMETHOXAZOLE\TRIMETHOPRIM
  3. MORPHINE [Suspect]
     Active Substance: MORPHINE

REACTIONS (3)
  - Drug ineffective [None]
  - Acute febrile neutrophilic dermatosis [None]
  - Pleural effusion [None]

NARRATIVE: CASE EVENT DATE: 20220824
